FAERS Safety Report 6609140-X (Version None)
Quarter: 2010Q1

REPORT INFORMATION
  Report Type: 
  Country: None (occurrence: None)
  Receive Date: 20100226
  Receipt Date: 20100226
  Transmission Date: 20100710
  Serious: Yes (Hospitalization)
  Sender: FDA-Public Use
  Company Number: None

PATIENT
  Age: 39 Year
  Sex: Female
  Weight: 86.1834 kg

DRUGS (2)
  1. EVAMIST [Suspect]
     Indication: PREMATURE MENOPAUSE
     Dosage: 1.56 2X A DAY
     Dates: start: 20090101, end: 20100218
  2. EVAMIST [Concomitant]

REACTIONS (7)
  - ANXIETY [None]
  - DEVICE MALFUNCTION [None]
  - HYPOAESTHESIA [None]
  - MENSTRUATION IRREGULAR [None]
  - OVARIAN CYST [None]
  - TRANSIENT ISCHAEMIC ATTACK [None]
  - VISUAL IMPAIRMENT [None]
